FAERS Safety Report 5524786-8 (Version None)
Quarter: 2007Q4

REPORT INFORMATION
  Report Type: 
  Country: None (occurrence: None)
  Receive Date: 20071116
  Receipt Date: 20071101
  Transmission Date: 20080405
  Serious: Yes (Hospitalization)
  Sender: FDA-Public Use
  Company Number: AZAUK200700392

PATIENT
  Age: 66 Year
  Sex: Male

DRUGS (12)
  1. VIDAZA [Suspect]
     Indication: MYELODYSPLASTIC SYNDROME
     Dosage: (156 MG), SUBCUTANEOUS
     Route: 058
     Dates: start: 20070307, end: 20070313
  2. ATENOLOL [Concomitant]
  3. FOLIC ACID [Concomitant]
  4. PYRIDOXINE (PYRIDOXINE) [Concomitant]
  5. BENDROFLUMETHIAZIDE (BENDROFLUMETHIAZIDE) [Concomitant]
  6. FLUOXETINE [Concomitant]
  7. TRAMADOL HCL [Concomitant]
  8. MESALAMINE [Concomitant]
  9. RANITIDINE [Concomitant]
  10. ALLOPURINOL [Concomitant]
  11. METOCLOPRAMIDE (METOCLOPRAMIDE) [Concomitant]
  12. WARFARIN SODIUM [Concomitant]

REACTIONS (1)
  - PULMONARY EMBOLISM [None]
